FAERS Safety Report 10948822 (Version 1)
Quarter: 2015Q1

REPORT INFORMATION
  Report Type: Spontaneous
  Country: US (occurrence: None)
  Receive Date: 20150323
  Receipt Date: 20150323
  Transmission Date: 20150721
  Serious: No
  Sender: FDA-Public Use
  Company Number: None

PATIENT
  Age: 52 Year
  Sex: Male
  Weight: 84.5 kg

DRUGS (1)
  1. MOMETASONE [Suspect]
     Active Substance: MOMETASONE
     Indication: ASTHMA
     Route: 055
     Dates: start: 20140624, end: 20150113

REACTIONS (1)
  - Vision blurred [None]

NARRATIVE: CASE EVENT DATE: 20140624
